FAERS Safety Report 9943841 (Version 2)
Quarter: 2014Q2

REPORT INFORMATION
  Report Type: Spontaneous
  Country: US (occurrence: US)
  Receive Date: 20140303
  Receipt Date: 20140519
  Transmission Date: 20141212
  Serious: Yes (Death, Other)
  Sender: FDA-Public Use
  Company Number: US-ELI_LILLY_AND_COMPANY-US201402009000

PATIENT
  Sex: Male
  Weight: 90.25 kg

DRUGS (3)
  1. INSULIN HUMAN [Suspect]
     Indication: DIABETES MELLITUS INADEQUATE CONTROL
     Dosage: 16 U, TID
     Route: 058
     Dates: start: 20140213, end: 20140226
  2. PREDNISONE [Concomitant]
  3. LANTUS [Concomitant]

REACTIONS (3)
  - Cardiac failure chronic [Fatal]
  - Renal failure [Fatal]
  - Diabetes mellitus [Fatal]
